FAERS Safety Report 24293397 (Version 1)
Quarter: 2024Q3

REPORT INFORMATION
  Report Type: Spontaneous
  Country: US (occurrence: None)
  Receive Date: 20240906
  Receipt Date: 20240906
  Transmission Date: 20241017
  Serious: No
  Sender: DOMPE FARMACEUTICI
  Company Number: US-FARMAPROD-202308-202401-0081

PATIENT
  Sex: Female
  Weight: 128.37 kg

DRUGS (14)
  1. OXERVATE [Suspect]
     Active Substance: CENEGERMIN-BKBJ
     Indication: Neurotrophic keratopathy
     Route: 047
     Dates: start: 20240102
  2. OXERVATE [Suspect]
     Active Substance: CENEGERMIN-BKBJ
  3. XIIDRA [Suspect]
     Active Substance: LIFITEGRAST
  4. TYRVAYA [Concomitant]
     Active Substance: VARENICLINE TARTRATE
     Dosage: 0.03 / SPRAY
  5. ADVIL [Concomitant]
     Active Substance: IBUPROFEN\IBUPROFEN SODIUM
  6. GENTEAL TEARS [Concomitant]
     Active Substance: DEXTRAN 70\HYPROMELLOSE 2910 (4000 MPA.S)
     Dosage: 0.1%-0.3%
  7. BIOTIN [Concomitant]
     Active Substance: BIOTIN
  8. PATADAY ONCE DAILY RELIEF [Concomitant]
     Active Substance: OLOPATADINE HYDROCHLORIDE
  9. CALCIUM [Concomitant]
     Active Substance: CALCIUM
  10. FLAXSEED [Concomitant]
     Active Substance: FLAX SEED
     Dosage: 1300-670 MG
  11. FERROUS SULFATE [Concomitant]
     Active Substance: FERROUS SULFATE
     Dosage: 325 (65) MG
  12. VITAMIN B12 [Concomitant]
     Active Substance: CYANOCOBALAMIN
  13. VITAMIN C [Concomitant]
     Active Substance: ASCORBIC ACID
  14. MINERALS\OMEGA-3 FATTY ACIDS\VITAMINS [Concomitant]
     Active Substance: MINERALS\OMEGA-3 FATTY ACIDS\VITAMINS

REACTIONS (4)
  - Accidental overdose [Unknown]
  - Eye pruritus [Recovering/Resolving]
  - Eyelid rash [Recovering/Resolving]
  - Drug interaction [Recovering/Resolving]
